FAERS Safety Report 15090423 (Version 2)
Quarter: 2019Q3

REPORT INFORMATION
  Report Type: Spontaneous
  Country: DK (occurrence: DK)
  Receive Date: 20180629
  Receipt Date: 20190709
  Transmission Date: 20191004
  Serious: Yes (Disabling, Other)
  Sender: FDA-Public Use
  Company Number: DK-GLAXOSMITHKLINE-DK2018111717

PATIENT
  Age: 36 Year
  Sex: Female
  Weight: 116 kg

DRUGS (2)
  1. CLEMASTINE FUMARATE. [Suspect]
     Active Substance: CLEMASTINE FUMARATE
     Indication: HYPERSENSITIVITY
     Dosage: 2 MG, QD (DOSAGE: 1 MG/ML.)
     Route: 030
     Dates: start: 20171101, end: 20171101
  2. PREDNISOLONE. [Concomitant]
     Active Substance: PREDNISOLONE
     Indication: HYPERSENSITIVITY
     Dosage: UNK (DOSAGE: UNKNOWN. STRENGTH: UNKNOWN)
     Route: 048
     Dates: start: 20171101

REACTIONS (6)
  - Injection site pain [Not Recovered/Not Resolved]
  - Hyperaesthesia [Not Recovered/Not Resolved]
  - Hyperaesthesia [Not Recovered/Not Resolved]
  - Pain in extremity [Not Recovered/Not Resolved]
  - Complex regional pain syndrome [Not Recovered/Not Resolved]
  - Neuropathy peripheral [Not Recovered/Not Resolved]

NARRATIVE: CASE EVENT DATE: 20171103
